FAERS Safety Report 7901962-8 (Version None)
Quarter: 2011Q4

REPORT INFORMATION
  Report Type: 
  Country: None (occurrence: None)
  Receive Date: 20111108
  Receipt Date: 20111103
  Transmission Date: 20120403
  Serious: No
  Sender: FDA-Public Use
  Company Number: US-TEVA-308055USA

PATIENT
  Sex: Female

DRUGS (3)
  1. ADDERALL 5 [Concomitant]
     Indication: ATTENTION DEFICIT/HYPERACTIVITY DISORDER
  2. ZYRTEC [Concomitant]
     Indication: HYPERSENSITIVITY
  3. PLAN B ONE-STEP [Suspect]
     Indication: POST COITAL CONTRACEPTION
     Dosage: 1.5 MILLIGRAM;
     Route: 048
     Dates: start: 20111016, end: 20111016

REACTIONS (1)
  - MENSTRUATION IRREGULAR [None]
